FAERS Safety Report 17609907 (Version 1)
Quarter: 2020Q1

REPORT INFORMATION
  Report Type: Spontaneous
  Country: US (occurrence: US)
  Receive Date: 20200331
  Receipt Date: 20200331
  Transmission Date: 20200409
  Serious: No
  Sender: FDA-Public Use
  Company Number: None

PATIENT
  Age: 50 Year
  Sex: Male

DRUGS (8)
  1. OTEZLA [Suspect]
     Active Substance: APREMILAST
     Indication: PSORIASIS
     Route: 048
     Dates: start: 20200305
  2. PROCTOZONE-HC [Concomitant]
     Active Substance: HYDROCORTISONE
     Dates: start: 20191130
  3. FERROUS SULFATE 325MG [Concomitant]
     Active Substance: FERROUS SULFATE
     Dates: start: 20191121
  4. CLOBETASOL PROP 0.05% OINT [Concomitant]
     Dates: start: 20191226
  5. CALCIPOTRIENE 0.005% OINT [Concomitant]
     Dates: start: 20191230
  6. TERAZOSIN 1MG [Concomitant]
     Dates: start: 20191121
  7. PREDNISONE 10MG [Concomitant]
     Active Substance: PREDNISONE
     Dates: start: 20200311
  8. MECLIZINE 25MG [Concomitant]
     Dates: start: 20191114

REACTIONS (2)
  - Frequent bowel movements [None]
  - Faeces soft [None]

NARRATIVE: CASE EVENT DATE: 20200305
